FAERS Safety Report 8495972-2 (Version None)
Quarter: 2012Q3

REPORT INFORMATION
  Report Type: 
  Country: None (occurrence: None)
  Receive Date: 20120709
  Receipt Date: 20120620
  Transmission Date: 20120928
  Serious: Yes (Hospitalization)
  Sender: FDA-Public Use
  Company Number: IE-GLAXOSMITHKLINE-B0810695A

PATIENT
  Sex: Female
  Weight: 86.7 kg

DRUGS (7)
  1. PACLITAXEL [Suspect]
     Indication: BREAST CANCER METASTATIC
     Dosage: 80MGM2 CYCLIC
     Route: 042
     Dates: start: 20120529
  2. LOPERAMIDE [Concomitant]
     Indication: DIARRHOEA
     Dosage: 4MG PER DAY
     Route: 048
     Dates: start: 20120529
  3. RAMIPRIL [Concomitant]
     Indication: HYPERTENSION
     Dosage: 5MG PER DAY
     Route: 048
     Dates: start: 20070601
  4. BENDROFLUMETHIAZIDE [Concomitant]
     Indication: HYPERTENSION
     Dosage: 2.5MG PER DAY
     Route: 048
     Dates: start: 20070601
  5. LAPATINIB [Suspect]
     Indication: BREAST CANCER METASTATIC
     Dosage: 1000MG PER DAY
     Route: 048
     Dates: start: 20120529
  6. TRASTUZUMAB [Suspect]
     Indication: BREAST CANCER METASTATIC
     Dosage: 4MGK CYCLIC
     Route: 042
     Dates: start: 20120529
  7. ALDOMET [Concomitant]
     Indication: HYPERTENSION
     Dosage: 250MG PER DAY
     Route: 048
     Dates: start: 20070601

REACTIONS (4)
  - DIARRHOEA [None]
  - BLOOD CREATININE INCREASED [None]
  - HYPONATRAEMIA [None]
  - FATIGUE [None]
